FAERS Safety Report 8245140-4 (Version None)
Quarter: 2012Q1

REPORT INFORMATION
  Report Type: 
  Country: None (occurrence: None)
  Receive Date: 20120329
  Receipt Date: 20120326
  Transmission Date: 20120608
  Serious: Yes (Other)
  Sender: FDA-Public Use
  Company Number: JP-PFIZER INC-2012053111

PATIENT
  Age: 90 Year
  Sex: Female

DRUGS (4)
  1. ENALAPRIL [Concomitant]
     Dosage: 25 MG, DAILY
     Route: 048
  2. ALDACTONE [Suspect]
     Dosage: 25 MG, DAILY
     Route: 048
     Dates: start: 20000101
  3. GRAMALIL [Concomitant]
     Dosage: 50 MG, DAILY
     Route: 048
  4. AMLODIPINE [Concomitant]
     Dosage: 5 MG, DAILY
     Route: 048

REACTIONS (4)
  - HAEMORRHOIDS [None]
  - POSTMENOPAUSAL HAEMORRHAGE [None]
  - CERVIX CARCINOMA [None]
  - FAECAL INCONTINENCE [None]
